FAERS Safety Report 4314899-0 (Version None)
Quarter: 2004Q1

REPORT INFORMATION
  Report Type: 
  Country: None (occurrence: None)
  Receive Date: 20040308
  Receipt Date: 20040224
  Transmission Date: 20041129
  Serious: Yes (Hospitalization)
  Sender: FDA-Public Use
  Company Number: 2004201170CA

PATIENT
  Age: 77 Year
  Sex: Female

DRUGS (1)
  1. BEXTRA [Suspect]
     Dosage: UNK, ORAL
     Route: 048
     Dates: start: 20030901

REACTIONS (5)
  - CHANGE OF BOWEL HABIT [None]
  - COGNITIVE DISORDER [None]
  - DIFFICULTY IN WALKING [None]
  - MICTURITION DISORDER [None]
  - SPEECH DISORDER [None]
